FAERS Safety Report 8171986-7 (Version None)
Quarter: 2012Q1

REPORT INFORMATION
  Report Type: 
  Country: None (occurrence: None)
  Receive Date: 20120228
  Receipt Date: 20120221
  Transmission Date: 20120608
  Serious: Yes (Other)
  Sender: FDA-Public Use
  Company Number: US-AMGEN-USASP2011054680

PATIENT
  Age: 58 Year
  Sex: Female

DRUGS (11)
  1. SODIUM CHLORIDE [Concomitant]
     Dosage: 1000 MG, TID
     Dates: start: 20100104
  2. MULTIVITAMIN                       /00097801/ [Concomitant]
     Dosage: UNK
     Dates: start: 20100807
  3. POTASSIUM CHLORIDE [Concomitant]
  4. MINERAL TAB [Concomitant]
  5. MAGNESIUM [Concomitant]
     Dosage: 350 MG, UNK
     Dates: start: 20100807
  6. VITAMIN D [Concomitant]
     Dosage: 4000 IU, UNK
     Dates: start: 20110708
  7. SODIUM CHLORIDE [Concomitant]
  8. POTASSIUM CHLORIDE [Concomitant]
     Dosage: 20 MEQ, QD
     Dates: start: 20100708
  9. HYDROCODONE [Concomitant]
     Dosage: UNK
     Dates: start: 20100708
  10. FIORICET [Concomitant]
  11. PROLIA [Suspect]
     Indication: OSTEOPOROSIS
     Dosage: 60 MG, Q6MO
     Dates: start: 20100807, end: 20110714

REACTIONS (17)
  - PATHOLOGICAL FRACTURE [None]
  - HYPONATRAEMIA [None]
  - JOINT SWELLING [None]
  - ABDOMINAL DISTENSION [None]
  - DENTAL CARIES [None]
  - RENAL DISORDER [None]
  - ARTHRALGIA [None]
  - SPINAL COMPRESSION FRACTURE [None]
  - BONE DENSITY DECREASED [None]
  - CHEST PAIN [None]
  - SERUM FERRITIN DECREASED [None]
  - WEIGHT INCREASED [None]
  - BONE FORMATION DECREASED [None]
  - BLOOD PRESSURE INCREASED [None]
  - TACHYCARDIA [None]
  - PAIN IN JAW [None]
  - BLOOD CREATININE DECREASED [None]
